FAERS Safety Report 24781162 (Version 1)
Quarter: 2024Q4

REPORT INFORMATION
  Report Type: Other
  Country: US (occurrence: US)
  Receive Date: 20241227
  Receipt Date: 20241227
  Transmission Date: 20250114
  Serious: No
  Sender: MERCK KGAA
  Company Number: DE-Merck Healthcare KGaA-2024066190

PATIENT

DRUGS (1)
  1. EUTHYROX [Suspect]
     Active Substance: LEVOTHYROXINE SODIUM
     Indication: Thyroid disorder

REACTIONS (9)
  - Fatigue [Unknown]
  - Memory impairment [Unknown]
  - Weight increased [Unknown]
  - Performance status decreased [Unknown]
  - Disturbance in attention [Unknown]
  - Bone density decreased [Unknown]
  - Alopecia [Unknown]
  - Constipation [Unknown]
  - Temperature intolerance [Unknown]
